FAERS Safety Report 20424185 (Version 1)
Quarter: 2022Q1

REPORT INFORMATION
  Report Type: Report from Study
  Country: US (occurrence: US)
  Receive Date: 20220203
  Receipt Date: 20220203
  Transmission Date: 20220424
  Serious: Yes (Death)
  Sender: FDA-Public Use
  Company Number: US-EXELIXIS-CABO-21040319

PATIENT
  Sex: Male
  Weight: 106 kg

DRUGS (11)
  1. CABOMETYX [Suspect]
     Active Substance: CABOZANTINIB S-MALATE
     Indication: Renal cancer
     Dosage: 40 MG, QD
     Route: 048
     Dates: start: 201910
  2. LASIX [Concomitant]
     Active Substance: FUROSEMIDE
  3. BENADRYL [Concomitant]
     Active Substance: DIPHENHYDRAMINE HYDROCHLORIDE
  4. MELATONIN;THEANINE [Concomitant]
  5. ZYRTEC [Concomitant]
     Active Substance: CETIRIZINE HYDROCHLORIDE
  6. IRON [Concomitant]
     Active Substance: IRON
  7. ZINC [Concomitant]
     Active Substance: ZINC
  8. GARLIC [Concomitant]
     Active Substance: GARLIC
  9. FLAXSEED [Concomitant]
     Active Substance: FLAX SEED
  10. VITAMIN D [Concomitant]
     Active Substance: VITAMIN D NOS
  11. VITAMIN C [Concomitant]
     Active Substance: ASCORBIC ACID

REACTIONS (1)
  - Malignant neoplasm progression [Fatal]
